FAERS Safety Report 4822874-2 (Version None)
Quarter: 2005Q4

REPORT INFORMATION
  Report Type: 
  Country: None (occurrence: None)
  Receive Date: 20051108
  Receipt Date: 20051028
  Transmission Date: 20060501
  Serious: Yes (Hospitalization)
  Sender: FDA-Public Use
  Company Number: US-BRISTOL-MYERS SQUIBB COMPANY-13161120

PATIENT
  Age: 48 Year
  Sex: Female
  Weight: 72 kg

DRUGS (10)
  1. TAXOL [Suspect]
     Route: 042
     Dates: start: 20051017, end: 20051017
  2. PARAPLATIN [Suspect]
     Route: 042
     Dates: start: 20051017, end: 20051017
  3. LORAZEPAM [Concomitant]
  4. COMPAZINE [Concomitant]
  5. DARVOCET-N 100 [Concomitant]
  6. BENADRYL [Concomitant]
     Indication: PREMEDICATION
     Route: 042
  7. RANITIDINE [Concomitant]
     Indication: PREMEDICATION
     Route: 042
  8. ANZEMET [Concomitant]
     Indication: PREMEDICATION
     Route: 042
  9. DECADRON [Concomitant]
     Indication: PREMEDICATION
     Route: 042
  10. EMEND [Concomitant]
     Indication: PREMEDICATION
     Route: 048

REACTIONS (1)
  - GRAND MAL CONVULSION [None]
